FAERS Safety Report 7388644-9 (Version None)
Quarter: 2011Q2

REPORT INFORMATION
  Report Type: 
  Country: None (occurrence: None)
  Receive Date: 20110401
  Receipt Date: 20110321
  Transmission Date: 20111010
  Serious: Yes (Other)
  Sender: FDA-Public Use
  Company Number: US-JNJFOC-20110310426

PATIENT
  Sex: Female
  Weight: 47.62 kg

DRUGS (4)
  1. NICOTROL [Suspect]
     Indication: PRODUCT USED FOR UNKNOWN INDICATION
     Dosage: REGIMEN #2
     Route: 055
  2. NICOTROL [Suspect]
     Dosage: REGIMEN #1
     Route: 055
  3. ALBUTEROL [Concomitant]
  4. OXYGEN [Concomitant]

REACTIONS (1)
  - THROAT TIGHTNESS [None]
